APPROVED DRUG PRODUCT: CEFIXIME
Active Ingredient: CEFIXIME
Strength: 400MG
Dosage Form/Route: CAPSULE;ORAL
Application: A210574 | Product #001 | TE Code: AB
Applicant: ALKEM LABORATORIES LTD
Approved: Oct 9, 2018 | RLD: No | RS: No | Type: RX